FAERS Safety Report 8872198 (Version 1)
Quarter: 2012Q4

REPORT INFORMATION
  Report Type: 
  Country: US (occurrence: US)
  Receive Date: 20121026
  Receipt Date: 20121026
  Transmission Date: 20130627
  Serious: No
  Sender: FDA-Public Use
  Company Number: US-AMGEN-USASP2012049163

PATIENT
  Age: 63 Year
  Sex: Female
  Weight: 58.05 kg

DRUGS (7)
  1. ENBREL [Suspect]
     Indication: PRODUCT USED FOR UNKNOWN INDICATION
     Dosage: 50 mg/ml, qwk
     Route: 058
  2. ONGLYZA [Concomitant]
     Dosage: 2.5 mg, UNK
  3. FOLIC ACID [Concomitant]
     Dosage: 1 mg, UNK
  4. METHOTREXATE [Concomitant]
     Dosage: 2.5 mg, UNK
  5. LIPITOR [Concomitant]
     Dosage: 10 mg, UNK
  6. EVISTA [Concomitant]
     Dosage: 60 mg, UNK
  7. CALCIUM +D                         /00944201/ [Concomitant]
     Dosage: UNK

REACTIONS (1)
  - Blood glucose decreased [Unknown]
